FAERS Safety Report 10375005 (Version 2)
Quarter: 2014Q3

REPORT INFORMATION
  Report Type: Spontaneous
  Country: JP (occurrence: JP)
  Receive Date: 20140811
  Receipt Date: 20140826
  Transmission Date: 20150326
  Serious: Yes (Other)
  Sender: FDA-Public Use
  Company Number: JP-GALDERMA-JP14002914

PATIENT
  Age: 39 Year
  Sex: Male

DRUGS (4)
  1. MINOMYCIN [Concomitant]
     Active Substance: MINOCYCLINE HYDROCHLORIDE
     Indication: ACNE
     Route: 048
     Dates: start: 20140708, end: 20140725
  2. HIRUDOID [Concomitant]
     Active Substance: GLYCOSAMINOGLYCANS
     Indication: DRY SKIN PROPHYLAXIS
     Route: 061
     Dates: start: 20140708, end: 20140712
  3. DALACIN [Concomitant]
     Active Substance: CLINDAMYCIN\CLINDAMYCIN PHOSPHATE
     Indication: ACNE
     Route: 061
     Dates: start: 20140708, end: 20140712
  4. DIFFERIN [Suspect]
     Active Substance: ADAPALENE
     Indication: ACNE
     Route: 061
     Dates: start: 20140708, end: 20140712

REACTIONS (1)
  - Eczema weeping [Recovered/Resolved]

NARRATIVE: CASE EVENT DATE: 20140712
